FAERS Safety Report 16475085 (Version 1)
Quarter: 2019Q2

REPORT INFORMATION
  Report Type: Spontaneous
  Country: FR (occurrence: FR)
  Receive Date: 20190625
  Receipt Date: 20190625
  Transmission Date: 20190711
  Serious: Yes (Other)
  Sender: FDA-Public Use
  Company Number: FR-MYLANLABS-2019M1058764

PATIENT
  Age: 33 Year
  Sex: Male
  Weight: 58 kg

DRUGS (1)
  1. PIPERACILLIN AND TAZOBACTAM [Suspect]
     Active Substance: PIPERACILLIN SODIUM\TAZOBACTAM SODIUM
     Indication: RESPIRATORY DISTRESS
     Dosage: 16 GRAM, Q8H
     Route: 042
     Dates: start: 20190221, end: 20190224

REACTIONS (2)
  - Eosinophil percentage increased [Recovered/Resolved]
  - Dermatitis bullous [Recovering/Resolving]

NARRATIVE: CASE EVENT DATE: 20190223
